FAERS Safety Report 9251904 (Version 4)
Quarter: 2013Q2

REPORT INFORMATION
  Report Type: Spontaneous
  Country: US (occurrence: US)
  Receive Date: 20130424
  Receipt Date: 20130530
  Transmission Date: 20140414
  Serious: No
  Sender: FDA-Public Use
  Company Number: US-PFIZER INC-2013127115

PATIENT
  Age: 59 Year
  Sex: Male
  Weight: 136 kg

DRUGS (1)
  1. LYRICA [Suspect]
     Indication: NEURALGIA
     Dosage: 150 MG, 3X/DAY
     Route: 048
     Dates: start: 201201, end: 20130401

REACTIONS (4)
  - Pain [Unknown]
  - Feeling abnormal [Unknown]
  - Irritability [Unknown]
  - Anxiety [Unknown]
